FAERS Safety Report 11021796 (Version 1)
Quarter: 2015Q2

REPORT INFORMATION
  Report Type: Spontaneous
  Country: IT (occurrence: IT)
  Receive Date: 20150413
  Receipt Date: 20150413
  Transmission Date: 20150821
  Serious: Yes (Other)
  Sender: FDA-Public Use
  Company Number: PHHY2015IT042191

PATIENT
  Age: 65 Year
  Sex: Female

DRUGS (1)
  1. TRIAMCINOLONE [Suspect]
     Active Substance: TRIAMCINOLONE
     Indication: CARPAL TUNNEL SYNDROME
     Dosage: 40 MG/ML, UNK
     Route: 026

REACTIONS (4)
  - Skin lesion [Unknown]
  - Connective tissue disorder [Unknown]
  - Pruritus [Unknown]
  - Papule [Unknown]
